FAERS Safety Report 4787193-1 (Version None)
Quarter: 2005Q4

REPORT INFORMATION
  Report Type: 
  Country: None (occurrence: None)
  Receive Date: 20051004
  Receipt Date: 20050701
  Transmission Date: 20060501
  Serious: Yes (Other)
  Sender: FDA-Public Use
  Company Number: DE-BRISTOL-MYERS SQUIBB COMPANY-13026117

PATIENT
  Age: 54 Year
  Sex: Female

DRUGS (2)
  1. ABILIFY [Suspect]
     Route: 048
     Dates: start: 20050201
  2. QUILONUM [Concomitant]

REACTIONS (3)
  - ECZEMA INFECTED [None]
  - PRURITUS [None]
  - WHITE BLOOD CELL COUNT DECREASED [None]
